FAERS Safety Report 7726021-9 (Version None)
Quarter: 2011Q3

REPORT INFORMATION
  Report Type: 
  Country: None (occurrence: None)
  Receive Date: 20110902
  Receipt Date: 20110826
  Transmission Date: 20111222
  Serious: Yes (Death)
  Sender: FDA-Public Use
  Company Number: CA-ROCHE-788696

PATIENT
  Sex: Male

DRUGS (2)
  1. PEGASYS [Suspect]
     Indication: HEPATITIS C
     Dosage: STOP DATE: JULY 2011
     Route: 065
     Dates: start: 20110331
  2. COPEGUS [Suspect]
     Indication: HEPATITIS C
     Dosage: STOP DATE: JULY 2011
     Route: 065
     Dates: start: 20110331

REACTIONS (1)
  - SUBARACHNOID HAEMORRHAGE [None]
